FAERS Safety Report 15593184 (Version 2)
Quarter: 2018Q4

REPORT INFORMATION
  Report Type: Report from Study
  Country: US (occurrence: US)
  Receive Date: 20181106
  Receipt Date: 20181116
  Transmission Date: 20190205
  Serious: Yes (Death)
  Sender: FDA-Public Use
  Company Number: US-ACTELION-A-NJ2018-165966

PATIENT
  Age: 73 Year
  Sex: Male

DRUGS (1)
  1. UPTRAVI [Suspect]
     Active Substance: SELEXIPAG
     Indication: PULMONARY ARTERIAL HYPERTENSION
     Dosage: 1600 MCG, BID
     Route: 048
     Dates: start: 20170317

REACTIONS (11)
  - Memory impairment [Unknown]
  - Somnolence [Unknown]
  - Thinking abnormal [Unknown]
  - Pulmonary arterial hypertension [Fatal]
  - Dyspnoea [Unknown]
  - Acute respiratory failure [Fatal]
  - Disease complication [Fatal]
  - Stress [Unknown]
  - Oxygen consumption increased [Unknown]
  - Movement disorder [Unknown]
  - Loss of consciousness [Unknown]
